FAERS Safety Report 10021370 (Version 1)
Quarter: 2014Q1

REPORT INFORMATION
  Report Type: Spontaneous
  Country: US (occurrence: None)
  Receive Date: 20140318
  Receipt Date: 20140318
  Transmission Date: 20141002
  Serious: Yes (Other)
  Sender: FDA-Public Use
  Company Number: None

PATIENT
  Age: 63 Year
  Sex: Male
  Weight: 61.24 kg

DRUGS (1)
  1. KENALOG [Suspect]
     Indication: SKIN MASS

REACTIONS (2)
  - Injection site bruising [None]
  - Injection site reaction [None]
